FAERS Safety Report 8097740-2 (Version None)
Quarter: 2012Q1

REPORT INFORMATION
  Report Type: 
  Country: None (occurrence: None)
  Receive Date: 20120128
  Receipt Date: 20110712
  Transmission Date: 20120608
  Serious: No
  Sender: FDA-Public Use
  Company Number: US-ABBOTT-11P-163-0839841-00

PATIENT
  Sex: Male
  Weight: 90.8 kg

DRUGS (4)
  1. ACETAMINOPHEN [Concomitant]
     Indication: PAIN
  2. PREVACID [Concomitant]
     Indication: GASTROOESOPHAGEAL REFLUX DISEASE
  3. HUMIRA [Suspect]
     Indication: INFLAMMATION
     Dates: start: 20020101
  4. HUMIRA [Suspect]
     Dates: start: 20100101

REACTIONS (3)
  - NERVOUSNESS [None]
  - DRUG EFFECT INCREASED [None]
  - DIZZINESS [None]
